FAERS Safety Report 8869546 (Version 2)
Quarter: 2012Q4

REPORT INFORMATION
  Report Type: 
  Country: JP (occurrence: JP)
  Receive Date: 20121028
  Receipt Date: 20121223
  Transmission Date: 20130627
  Serious: Yes (Hospitalization)
  Sender: FDA-Public Use
  Company Number: JP-009507513-1210JPN006680

PATIENT
  Age: 69 Year
  Sex: Male
  Weight: 54 kg

DRUGS (18)
  1. PEGINTRON [Suspect]
     Indication: CHRONIC HEPATITIS C
     Dosage: 1.5 Microgram per kilogram, qw
     Route: 058
     Dates: start: 20120904, end: 20120927
  2. PEGINTRON [Suspect]
     Dosage: 1 Microgram per kilogram,qw
     Route: 058
     Dates: start: 20121013, end: 20121108
  3. PEGINTRON [Suspect]
     Dosage: 1.4 Microgram per kilogram, qw
     Route: 058
     Dates: start: 20121115
  4. REBETOL [Suspect]
     Indication: CHRONIC HEPATITIS C
     Dosage: 400 mg, qd
     Route: 048
     Dates: start: 20120904, end: 20120927
  5. REBETOL [Suspect]
     Dosage: 600mg,qd
     Route: 048
     Dates: start: 20121013, end: 20121129
  6. REBETOL [Suspect]
     Dosage: 400 mg, qd
     Route: 048
     Dates: start: 20121130
  7. TELAVIC [Suspect]
     Indication: CHRONIC HEPATITIS C
     Dosage: 1500mg, qd
     Route: 048
     Dates: start: 20120904, end: 20120920
  8. TELAVIC [Suspect]
     Dosage: 1000mg, qd
     Route: 048
     Dates: start: 20120920, end: 20120927
  9. URSO [Concomitant]
     Indication: CHRONIC HEPATITIS C
     Dosage: 100 mg, qd , Formulation: POR
     Route: 048
  10. URSO [Concomitant]
     Dosage: 300 MG,QD,POR
     Route: 048
  11. MUCOSTA [Concomitant]
     Indication: PROPHYLAXIS
     Dosage: 300 mg, qd , Formulation: POR
     Route: 048
  12. AMARYL [Concomitant]
     Indication: DIABETES MELLITUS
     Dosage: 4 mg, qd , Formulation: POR
     Route: 048
  13. PARIET [Concomitant]
     Indication: PROPHYLAXIS
     Dosage: 10 mg, qd, Formulation : POR
     Route: 048
  14. PARIET [Concomitant]
     Indication: GASTROOESOPHAGEAL REFLUX DISEASE
  15. WARFARIN [Concomitant]
     Indication: ATRIAL FIBRILLATION
     Dosage: 4 mg, qd , Formulation : POR
     Route: 048
  16. FERROMIA [Concomitant]
     Indication: IRON DEFICIENCY
     Dosage: 200 mg, qd , Formulation :POR
     Route: 048
  17. NORVASC OD [Concomitant]
     Indication: HYPERTENSION
     Dosage: 5 mg, qd , Formulation : POR
     Route: 048
  18. LANIRAPID [Concomitant]
     Indication: ATRIAL FIBRILLATION
     Dosage: 0.1 mg, qd, POR
     Route: 048

REACTIONS (3)
  - Renal disorder [Recovering/Resolving]
  - Ascites [Recovering/Resolving]
  - Cardiac failure [Unknown]
